FAERS Safety Report 23294714 (Version 1)
Quarter: 2023Q4

REPORT INFORMATION
  Report Type: Report from Study
  Country: KR (occurrence: KR)
  Receive Date: 20231213
  Receipt Date: 20231213
  Transmission Date: 20240109
  Serious: Yes (Other)
  Sender: FDA-Public Use
  Company Number: KR-MYLANLABS-2023M1131801

PATIENT
  Sex: Male
  Weight: 67 kg

DRUGS (9)
  1. LYRICA CR [Suspect]
     Active Substance: PREGABALIN
     Indication: Neuralgia
     Dosage: 165 MILLIGRAM, QD
     Route: 048
     Dates: start: 20200903, end: 20200924
  2. LYRICA CR [Suspect]
     Active Substance: PREGABALIN
     Indication: Neuritis
  3. OXCARBAZEPINE [Concomitant]
     Active Substance: OXCARBAZEPINE
     Indication: Guillain-Barre syndrome
     Dosage: 150 MILLIGRAM, BID
     Route: 048
     Dates: start: 20191007
  4. ACETAMINOPHEN [Concomitant]
     Active Substance: ACETAMINOPHEN
     Indication: Neuralgia
     Dosage: 325 MILLIGRAM, BID
     Route: 048
     Dates: start: 20191007
  5. ACETAMINOPHEN [Concomitant]
     Active Substance: ACETAMINOPHEN
     Indication: Neuritis
  6. GABAPENTIN [Concomitant]
     Active Substance: GABAPENTIN
     Indication: Neuralgia
     Dosage: 600 MILLIGRAM, BID
     Route: 048
     Dates: start: 20191007
  7. GABAPENTIN [Concomitant]
     Active Substance: GABAPENTIN
     Indication: Neuritis
  8. PREGABALIN [Concomitant]
     Active Substance: PREGABALIN
     Indication: Neuralgia
     Dosage: 150 MILLIGRAM, QD
     Route: 048
     Dates: start: 20200924, end: 20210517
  9. PREGABALIN [Concomitant]
     Active Substance: PREGABALIN
     Indication: Neuritis

REACTIONS (1)
  - Guillain-Barre syndrome [Recovered/Resolved]

NARRATIVE: CASE EVENT DATE: 20200924
